FAERS Safety Report 21761110 (Version 2)
Quarter: 2022Q4

REPORT INFORMATION
  Report Type: Spontaneous
  Country: IT (occurrence: IT)
  Receive Date: 20221221
  Receipt Date: 20221229
  Transmission Date: 20230113
  Serious: Yes (Hospitalization)
  Sender: FDA-Public Use
  Company Number: None

PATIENT
  Age: 53 Year
  Sex: Male
  Weight: 70 kg

DRUGS (6)
  1. MYLOTARG [Suspect]
     Active Substance: GEMTUZUMAB OZOGAMICIN
     Indication: Acute myeloid leukaemia
     Dosage: 3MG/M2 G1
     Route: 042
     Dates: start: 20220913, end: 20220913
  2. ONDANSETRON [Concomitant]
     Active Substance: ONDANSETRON
     Dosage: 8 MG, 2X/DAY
     Route: 042
     Dates: start: 20220913, end: 20220919
  3. TRIMETON [Concomitant]
     Active Substance: CHLORPHENIRAMINE MALEATE
     Dosage: 10 MG, DAILY
     Route: 042
     Dates: start: 20220913, end: 20220919
  4. DEXAMETHASONE [Concomitant]
     Active Substance: DEXAMETHASONE
     Dosage: 4 MG, DAILY
     Route: 042
     Dates: start: 20220913, end: 20220919
  5. DAUNORUBICIN [Concomitant]
     Active Substance: DAUNORUBICIN
     Indication: Acute myeloid leukaemia
     Dosage: 111 MG, DAILY
     Route: 042
     Dates: start: 20220913, end: 20220919
  6. CYTARABINE [Concomitant]
     Active Substance: CYTARABINE
     Indication: Acute myeloid leukaemia
     Dosage: 370 MG, DAILY
     Route: 042
     Dates: start: 20220913, end: 20220919

REACTIONS (2)
  - Drug-induced liver injury [Recovering/Resolving]
  - Vasculitis [Recovered/Resolved]

NARRATIVE: CASE EVENT DATE: 20220913
